FAERS Safety Report 19816622 (Version 1)
Quarter: 2021Q3

REPORT INFORMATION
  Report Type: Spontaneous
  Country: US (occurrence: US)
  Receive Date: 20210910
  Receipt Date: 20210910
  Transmission Date: 20211014
  Serious: No
  Sender: FDA-Public Use
  Company Number: US-SA-2021SA292084

PATIENT
  Age: 53 Year
  Sex: Female

DRUGS (23)
  1. TOPIRAMATE. [Concomitant]
     Active Substance: TOPIRAMATE
  2. FETZIMA [Concomitant]
     Active Substance: LEVOMILNACIPRAN HYDROCHLORIDE
  3. BUSPIRONE [Concomitant]
     Active Substance: BUSPIRONE HYDROCHLORIDE
  4. DUPIXENT [Suspect]
     Active Substance: DUPILUMAB
     Indication: NASAL POLYPS
     Dosage: 300 MG, QOW
     Route: 058
     Dates: start: 20210811
  5. BELSOMRA [Concomitant]
     Active Substance: SUVOREXANT
  6. REMICADE [Concomitant]
     Active Substance: INFLIXIMAB
  7. VITAMINS NOS [Concomitant]
     Active Substance: VITAMINS
  8. TYLENOL [Concomitant]
     Active Substance: ACETAMINOPHEN
  9. REXULTI [Concomitant]
     Active Substance: BREXPIPRAZOLE
  10. CYCLOBENZAPRINE. [Concomitant]
     Active Substance: CYCLOBENZAPRINE
  11. TURMERIC [CURCUMA LONGA] [Concomitant]
     Active Substance: HERBALS\TURMERIC
  12. MODERNA COVID?19 VACCINE [Concomitant]
     Active Substance: CX-024414
     Indication: COVID-19 IMMUNISATION
  13. VITAMIN D NOS [Concomitant]
     Active Substance: VITAMIN D NOS
  14. METHOTREXATE. [Concomitant]
     Active Substance: METHOTREXATE
  15. PREDNISONE. [Concomitant]
     Active Substance: PREDNISONE
  16. LEVOTHYROXINE SODIUM. [Concomitant]
     Active Substance: LEVOTHYROXINE SODIUM
  17. NOVOLOG [Concomitant]
     Active Substance: INSULIN ASPART
  18. FLONASE ALLERGY RELIEF [Concomitant]
     Active Substance: FLUTICASONE PROPIONATE
  19. PRAVASTATIN SODIUM. [Concomitant]
     Active Substance: PRAVASTATIN SODIUM
  20. GABAPENTIN. [Concomitant]
     Active Substance: GABAPENTIN
  21. COENZYME Q10 [Concomitant]
     Active Substance: DIETARY SUPPLEMENT\UBIDECARENONE
  22. EZETIMIBE. [Concomitant]
     Active Substance: EZETIMIBE
  23. CLONAZEPAM. [Concomitant]
     Active Substance: CLONAZEPAM

REACTIONS (3)
  - Drug effect less than expected [Unknown]
  - Osteochondritis [Unknown]
  - Abscess [Unknown]
